FAERS Safety Report 7080548-4 (Version None)
Quarter: 2010Q4

REPORT INFORMATION
  Report Type: 
  Country: None (occurrence: None)
  Receive Date: 20101103
  Receipt Date: 20101025
  Transmission Date: 20110411
  Serious: Yes (Death, Other)
  Sender: FDA-Public Use
  Company Number: US-CELGENEUS-163-21880-10101200

PATIENT
  Sex: Male

DRUGS (9)
  1. REVLIMID [Suspect]
     Route: 048
     Dates: start: 20100616, end: 20100715
  2. ARIXTRA [Concomitant]
     Route: 058
  3. ARIXTRA [Concomitant]
     Route: 058
     Dates: start: 20090901
  4. DEXAMETHASONE [Concomitant]
     Route: 065
     Dates: start: 20100618, end: 20100618
  5. DIOVAN [Concomitant]
     Route: 065
     Dates: start: 20100701
  6. FINASTERIDE [Concomitant]
     Dosage: 1-5MG
     Route: 065
  7. MIRALAX [Concomitant]
     Route: 065
  8. SANCTURA [Concomitant]
     Dosage: 1-60MG
     Route: 065
  9. ACETAMINOPHEN AND HYDROCODONE BITARTRATE [Concomitant]
     Route: 065
     Dates: start: 20100816

REACTIONS (2)
  - CEREBROVASCULAR ACCIDENT [None]
  - MULTIPLE MYELOMA [None]
